FAERS Safety Report 21555272 (Version 1)
Quarter: 2022Q4

REPORT INFORMATION
  Report Type: Spontaneous
  Country: US (occurrence: None)
  Receive Date: 20221103
  Receipt Date: 20221103
  Transmission Date: 20230112
  Serious: Yes (Hospitalization)
  Sender: FDA-Public Use
  Company Number: None

PATIENT
  Age: 55 Year
  Sex: Female
  Weight: 88.70 kg

DRUGS (1)
  1. ABECMA [Suspect]
     Active Substance: IDECABTAGENE VICLEUCEL
     Indication: Plasma cell myeloma
     Route: 042
     Dates: start: 20221004, end: 20221004

REACTIONS (5)
  - Pyrexia [None]
  - Hypotension [None]
  - Sinus tachycardia [None]
  - Infusion related reaction [None]
  - Cytokine release syndrome [None]

NARRATIVE: CASE EVENT DATE: 20221005
